FAERS Safety Report 9716005 (Version 1)
Quarter: 2013Q4

REPORT INFORMATION
  Report Type: Spontaneous
  Country: US (occurrence: US)
  Receive Date: 20131127
  Receipt Date: 20131127
  Transmission Date: 20140711
  Serious: No
  Sender: FDA-Public Use
  Company Number: US-BAYER-2013-144167

PATIENT
  Age: 60 Year
  Sex: Male
  Weight: 85.71 kg

DRUGS (5)
  1. ALEVE TABLET [Suspect]
     Indication: ARTHRITIS
     Dosage: 2 DF, ONCE
     Route: 048
     Dates: start: 20131115, end: 20131115
  2. ALEVE TABLET [Suspect]
     Indication: ARTHRITIS
     Dosage: 2 DF, ONCE
     Route: 048
     Dates: start: 20131118, end: 20131118
  3. ALEVE TABLET [Suspect]
     Indication: ARTHRITIS
     Dosage: 1 DF, UNK
     Dates: start: 20131119
  4. FISH OIL [Concomitant]
     Dosage: UNK
  5. VITAMIN D [Concomitant]
     Dosage: UNK

REACTIONS (2)
  - Dyspepsia [Recovered/Resolved]
  - Dyspepsia [Recovered/Resolved]
